FAERS Safety Report 9793561 (Version 2)
Quarter: 2014Q1

REPORT INFORMATION
  Report Type: Spontaneous
  Country: US (occurrence: US)
  Receive Date: 20140102
  Receipt Date: 20140102
  Transmission Date: 20141002
  Serious: No
  Sender: FDA-Public Use
  Company Number: US-AMGEN-USASP2013077061

PATIENT
  Age: 72 Year
  Sex: Female

DRUGS (2)
  1. ENBREL [Suspect]
     Indication: RHEUMATOID ARTHRITIS
     Dosage: 50 MG, QWK
     Route: 065
     Dates: start: 20130912
  2. ENBREL [Suspect]
     Dosage: UNK
     Route: 065

REACTIONS (10)
  - Dental caries [Not Recovered/Not Resolved]
  - Toothache [Not Recovered/Not Resolved]
  - Alopecia [Not Recovered/Not Resolved]
  - Oral pain [Not Recovered/Not Resolved]
  - Swollen tongue [Not Recovered/Not Resolved]
  - Glossodynia [Not Recovered/Not Resolved]
  - Dyspnoea [Recovered/Resolved]
  - Musculoskeletal stiffness [Not Recovered/Not Resolved]
  - Increased tendency to bruise [Not Recovered/Not Resolved]
  - Oral fungal infection [Not Recovered/Not Resolved]
